FAERS Safety Report 5737645-2 (Version None)
Quarter: 2008Q2

REPORT INFORMATION
  Report Type: 
  Country: None (occurrence: None)
  Receive Date: 20080514
  Receipt Date: 20080512
  Transmission Date: 20081010
  Serious: Yes (Hospitalization, Other)
  Sender: FDA-Public Use
  Company Number: TR-BRISTOL-MYERS SQUIBB COMPANY-13943337

PATIENT
  Age: 50 Year
  Sex: Male

DRUGS (4)
  1. ENTECAVIR [Suspect]
     Indication: HEPATITIS B
     Dosage: DRUG INTERRUPTED ON 15-OCT-2007, RESTARTED ON AN UNSPECIFIED DATE, INTERRUPTED AGAIN ON 28-JAN-2008.
     Route: 048
     Dates: start: 20070926, end: 20080128
  2. ENTECAVIR [Suspect]
     Indication: HEPATIC FAILURE
     Dosage: DRUG INTERRUPTED ON 15-OCT-2007, RESTARTED ON AN UNSPECIFIED DATE, INTERRUPTED AGAIN ON 28-JAN-2008.
     Route: 048
     Dates: start: 20070926, end: 20080128
  3. INSULIN [Concomitant]
     Dates: start: 20030610
  4. SPIRONOLACTONE [Concomitant]
     Dates: start: 20070827

REACTIONS (4)
  - BLOOD BILIRUBIN INCREASED [None]
  - HEPATIC ENCEPHALOPATHY [None]
  - LIVER TRANSPLANT [None]
  - PROTHROMBIN TIME PROLONGED [None]
